FAERS Safety Report 4869972-5 (Version None)
Quarter: 2005Q4

REPORT INFORMATION
  Report Type: 
  Country: None (occurrence: None)
  Receive Date: 20051223
  Receipt Date: 20051219
  Transmission Date: 20060501
  Serious: Yes (Other)
  Sender: FDA-Public Use
  Company Number: S05-USA-05242-01

PATIENT
  Sex: Female

DRUGS (1)
  1. THYROID TAB [Suspect]
     Indication: AUTOIMMUNE THYROIDITIS
     Dosage: 60 MG QD PO
     Route: 048
     Dates: start: 20051015

REACTIONS (4)
  - CUTANEOUS LUPUS ERYTHEMATOSUS [None]
  - FATIGUE [None]
  - MUSCLE SPASMS [None]
  - TONGUE OEDEMA [None]
